FAERS Safety Report 19477851 (Version 1)
Quarter: 2021Q2

REPORT INFORMATION
  Report Type: Not Available
  Country: US (occurrence: None)
  Receive Date: 20210630
  Receipt Date: 20210630
  Transmission Date: 20210717
  Serious: Yes (Other)
  Sender: FDA-Public Use
  Company Number: US-AKORN-169213

PATIENT
  Sex: Female

DRUGS (1)
  1. MEGESTROL ACETATE ORAL SUSPENSION, USP [Suspect]
     Active Substance: MEGESTROL ACETATE

REACTIONS (1)
  - Vomiting [Recovered/Resolved]

NARRATIVE: CASE EVENT DATE: 20210621
